FAERS Safety Report 15869208 (Version 3)
Quarter: 2020Q3

REPORT INFORMATION
  Report Type: Report from Study
  Country: DE (occurrence: DE)
  Receive Date: 20190125
  Receipt Date: 20200805
  Transmission Date: 20201102
  Serious: Yes (Hospitalization)
  Sender: FDA-Public Use
  Company Number: DE-SHIRE-DE201901991

PATIENT

DRUGS (15)
  1. TEDUGLUTIDE [Suspect]
     Active Substance: TEDUGLUTIDE
     Indication: SHORT-BOWEL SYNDROME
     Dosage: TOTAL DAILY DOSE 2.4 MILLIGRAM
     Route: 065
     Dates: start: 20160126, end: 201807
  2. TEDUGLUTIDE [Suspect]
     Active Substance: TEDUGLUTIDE
     Dosage: TOTAL DAILY DOSE 2.4 MILLIGRAM
     Route: 065
     Dates: start: 201809
  3. TEDUGLUTIDE [Suspect]
     Active Substance: TEDUGLUTIDE
     Indication: SHORT-BOWEL SYNDROME
     Dosage: TOTAL DAILY DOSE 2.4 MILLIGRAM
     Route: 065
     Dates: start: 20160126, end: 201807
  4. TEDUGLUTIDE [Suspect]
     Active Substance: TEDUGLUTIDE
     Indication: SHORT-BOWEL SYNDROME
     Dosage: TOTAL DAILY DOSE 2.4 MILLIGRAM
     Route: 065
     Dates: start: 20160126, end: 201807
  5. TEDUGLUTIDE [Suspect]
     Active Substance: TEDUGLUTIDE
     Dosage: TOTAL DAILY DOSE 2.6 MILLIGRAM
     Route: 065
     Dates: start: 201807, end: 201809
  6. TEDUGLUTIDE [Suspect]
     Active Substance: TEDUGLUTIDE
     Dosage: TOTAL DAILY DOSE 2.6 MILLIGRAM
     Route: 065
     Dates: start: 201807, end: 201809
  7. TEDUGLUTIDE [Suspect]
     Active Substance: TEDUGLUTIDE
     Dosage: TOTAL DAILY DOSE 2.6 MILLIGRAM
     Route: 065
     Dates: start: 201807, end: 201809
  8. TEDUGLUTIDE [Suspect]
     Active Substance: TEDUGLUTIDE
     Dosage: TOTAL DAILY DOSE 2.4 MILLIGRAM
     Route: 065
     Dates: start: 201809
  9. TEDUGLUTIDE [Suspect]
     Active Substance: TEDUGLUTIDE
     Indication: SHORT-BOWEL SYNDROME
     Dosage: TOTAL DAILY DOSE 2.4 MILLIGRAM
     Route: 065
     Dates: start: 20160126, end: 201807
  10. TEDUGLUTIDE [Suspect]
     Active Substance: TEDUGLUTIDE
     Dosage: TOTAL DAILY DOSE 2.4 MILLIGRAM
     Route: 065
     Dates: start: 201809
  11. SULBACTAM [Concomitant]
     Active Substance: SULBACTAM
     Indication: KLEBSIELLA INFECTION
  12. TEDUGLUTIDE [Suspect]
     Active Substance: TEDUGLUTIDE
     Dosage: TOTAL DAILY DOSE 2.4 MILLIGRAM
     Route: 065
     Dates: start: 201809
  13. PRADAXA [Concomitant]
     Active Substance: DABIGATRAN ETEXILATE MESYLATE
     Indication: PRODUCT USED FOR UNKNOWN INDICATION
  14. TEDUGLUTIDE [Suspect]
     Active Substance: TEDUGLUTIDE
     Dosage: TOTAL DAILY DOSE 2.6 MILLIGRAM
     Route: 065
     Dates: start: 201807, end: 201809
  15. XARELTO [Concomitant]
     Active Substance: RIVAROXABAN
     Indication: PRODUCT USED FOR UNKNOWN INDICATION

REACTIONS (1)
  - Vertigo [Recovered/Resolved]

NARRATIVE: CASE EVENT DATE: 201810
